FAERS Safety Report 4972278-7 (Version None)
Quarter: 2006Q1

REPORT INFORMATION
  Report Type: 
  Country: None (occurrence: None)
  Receive Date: 20060213
  Receipt Date: 20051116
  Transmission Date: 20060701
  Serious: No
  Sender: FDA-Public Use
  Company Number: 012014

PATIENT
  Age: 53 Year
  Sex: Male

DRUGS (9)
  1. PRIALT [Suspect]
     Indication: PAIN
     Dosage: 0.25 UG, ONCE/HOUR, INTRATHECAL;0.35 UG, ONCE/HOUR, INTRATHECAL
     Route: 037
     Dates: start: 20050101
  2. PRIALT [Suspect]
     Indication: PAIN
     Dosage: 0.25 UG, ONCE/HOUR, INTRATHECAL;0.35 UG, ONCE/HOUR, INTRATHECAL
     Route: 037
     Dates: start: 20050701
  3. NEURONTIN [Concomitant]
  4. DILAUDID [Concomitant]
  5. CELEBREX [Concomitant]
  6. TRAZODONE HCL [Concomitant]
  7. CELEXA [Concomitant]
  8. ZYRTEC /00884302/ (CETIRIZINE HYDROCHLORIDE) [Concomitant]
  9. CLONIDINE [Concomitant]

REACTIONS (2)
  - FALL [None]
  - LIMB INJURY [None]
